FAERS Safety Report 24265958 (Version 1)
Quarter: 2024Q3

REPORT INFORMATION
  Report Type: Spontaneous
  Country: US (occurrence: US)
  Receive Date: 20240830
  Receipt Date: 20240830
  Transmission Date: 20241017
  Serious: Yes (Death, Other)
  Sender: AMGEN
  Company Number: US-AMGEN-USASP2024168658

PATIENT

DRUGS (4)
  1. PEGFILGRASTIM [Suspect]
     Active Substance: PEGFILGRASTIM
     Indication: Bladder transitional cell carcinoma
     Dosage: 6 MILLIGRAM, Q3WK (ON DAY 9 OF EACH CYCLE)
     Route: 058
  2. CISPLATIN [Concomitant]
     Active Substance: CISPLATIN
     Indication: Bladder transitional cell carcinoma
     Dosage: 35 MILLIGRAM/SQ. METER (ON DAYS 1 AND 8 OF A 21 -DAY CYCLE FOR A MAXIMUM OF 4 CYCLES)
     Route: 042
  3. GEMCITABINE [Concomitant]
     Active Substance: GEMCITABINE
     Indication: Bladder transitional cell carcinoma
     Dosage: 800 MILLIGRAM/SQ. METER (ON DAYS 1 AND 8 OF A 21 -DAY CYCLE FOR A MAXIMUM OF 4 CYCLES)
     Route: 042
  4. DOCETAXEL [Concomitant]
     Active Substance: DOCETAXEL\DOCETAXEL ANHYDROUS
     Indication: Bladder transitional cell carcinoma
     Dosage: 35 MILLIGRAM/SQ. METER (ON DAYS 1 AND 8 OF A 21 -DAY CYCLE FOR A MAXIMUM OF 4 CYCLES)
     Route: 042

REACTIONS (35)
  - Death [Fatal]
  - Leukopenia [Unknown]
  - Neutropenia [Unknown]
  - Infection [Unknown]
  - Pulmonary embolism [Unknown]
  - Thrombocytopenia [Unknown]
  - Hypophosphataemia [Unknown]
  - Myelosuppression [Unknown]
  - Renal impairment [Unknown]
  - Hypomagnesaemia [Unknown]
  - Hypocalcaemia [Unknown]
  - Deep vein thrombosis [Unknown]
  - Hypokalaemia [Unknown]
  - Hyperbilirubinaemia [Unknown]
  - Colitis [Unknown]
  - Fatigue [Unknown]
  - Neuropathy peripheral [Unknown]
  - Lymphopenia [Unknown]
  - Anaemia [Unknown]
  - Hyponatraemia [Unknown]
  - Diarrhoea [Unknown]
  - Blood creatinine increased [Unknown]
  - Alanine aminotransferase increased [Unknown]
  - Aspartate aminotransferase increased [Unknown]
  - Pain [Unknown]
  - Weight decreased [Unknown]
  - Headache [Unknown]
  - Hypoacusis [Unknown]
  - Dyspnoea [Unknown]
  - Peripheral swelling [Unknown]
  - Nausea [Unknown]
  - Constipation [Unknown]
  - Decreased appetite [Unknown]
  - Taste disorder [Unknown]
  - Blood alkaline phosphatase increased [Unknown]
